FAERS Safety Report 13817552 (Version 3)
Quarter: 2017Q3

REPORT INFORMATION
  Report Type: Spontaneous
  Country: RU (occurrence: RU)
  Receive Date: 20170731
  Receipt Date: 20170918
  Transmission Date: 20171127
  Serious: Yes (Hospitalization, Other)
  Sender: FDA-Public Use
  Company Number: RU-BAYER-2017-143289

PATIENT
  Age: 35 Year
  Sex: Female

DRUGS (1)
  1. MIRENA [Suspect]
     Active Substance: LEVONORGESTREL
     Indication: CONTRACEPTION
     Dosage: 20 MCG/24HR, CONT
     Route: 015
     Dates: start: 20150417, end: 201707

REACTIONS (15)
  - Ruptured ectopic pregnancy [Recovered/Resolved]
  - Dry mouth [Recovered/Resolved]
  - Blood pressure systolic decreased [Recovered/Resolved]
  - Haemoglobin decreased [Recovered/Resolved]
  - Intra-abdominal haemorrhage [Recovered/Resolved]
  - Dizziness [Recovered/Resolved]
  - Loss of consciousness [Recovered/Resolved]
  - Shock haemorrhagic [Recovered/Resolved]
  - Drug ineffective [None]
  - Visual impairment [Recovered/Resolved]
  - Product quality issue [None]
  - Ectopic pregnancy with contraceptive device [Recovered/Resolved]
  - Asthenia [Recovered/Resolved]
  - Abortion of ectopic pregnancy [Recovered/Resolved]
  - Abdominal pain lower [Recovered/Resolved]

NARRATIVE: CASE EVENT DATE: 20170712
